FAERS Safety Report 7743959-7 (Version None)
Quarter: 2011Q3

REPORT INFORMATION
  Report Type: 
  Country: None (occurrence: None)
  Receive Date: 20110912
  Receipt Date: 20110905
  Transmission Date: 20111222
  Serious: Yes (Other)
  Sender: FDA-Public Use
  Company Number: IT-GLAXOSMITHKLINE-B0745920A

PATIENT

DRUGS (2)
  1. CAPECITABINE [Concomitant]
     Dosage: 3650MG PER DAY
     Dates: start: 20110531
  2. LAPATINIB [Suspect]
     Indication: BREAST CANCER METASTATIC
     Dosage: 1250MG PER DAY
     Route: 048
     Dates: start: 20110531

REACTIONS (1)
  - APHASIA [None]
